FAERS Safety Report 4784899-5 (Version None)
Quarter: 2005Q3

REPORT INFORMATION
  Report Type: 
  Country: None (occurrence: None)
  Receive Date: 20050929
  Receipt Date: 20050929
  Transmission Date: 20060218
  Serious: Yes (Death)
  Sender: FDA-Public Use
  Company Number: None

PATIENT
  Age: 80 Year
  Sex: Female
  Weight: 82.1011 kg

DRUGS (4)
  1. ZOMETA [Suspect]
     Indication: BREAST CANCER
     Dosage: 4MG IVPB
     Route: 042
     Dates: start: 20050914
  2. ZOMETA [Suspect]
     Indication: METASTASES TO BONE
     Dosage: 4MG IVPB
     Route: 042
     Dates: start: 20050914
  3. FEMARA [Concomitant]
  4. TAMOXIFEN CITRATE [Concomitant]

REACTIONS (3)
  - BONE SCAN ABNORMAL [None]
  - METASTASES TO BONE [None]
  - SUDDEN DEATH [None]
